FAERS Safety Report 9113417 (Version 1)
Quarter: 2013Q1

REPORT INFORMATION
  Report Type: Spontaneous
  Country: FR (occurrence: FR)
  Receive Date: 20130131
  Receipt Date: 20130131
  Transmission Date: 20140127
  Serious: Yes (Hospitalization)
  Sender: FDA-Public Use
  Company Number: FR-PFIZER INC-2013029263

PATIENT
  Age: 25 Year
  Sex: Male

DRUGS (2)
  1. ZYVOXID [Suspect]
     Dosage: 600 MG, 2X/DAY
     Route: 048
     Dates: start: 20121124, end: 20121128
  2. TRIATEC [Suspect]
     Dosage: 5 MG, 1X/DAY
     Route: 048
     Dates: end: 20121128

REACTIONS (1)
  - Hyperkalaemia [Recovered/Resolved]
